FAERS Safety Report 6526550-X (Version None)
Quarter: 2010Q1

REPORT INFORMATION
  Report Type: 
  Country: None (occurrence: None)
  Receive Date: 20100105
  Receipt Date: 20091221
  Transmission Date: 20100710
  Serious: Yes (Other)
  Sender: FDA-Public Use
  Company Number: PHHY2009NL57694

PATIENT
  Sex: Female

DRUGS (3)
  1. RITALIN [Suspect]
  2. EFFEXOR [Concomitant]
     Dosage: 150 MG, UNK
  3. CONCERTA [Concomitant]

REACTIONS (3)
  - BLOOD FOLLICLE STIMULATING HORMONE INCREASED [None]
  - BLOOD LUTEINISING HORMONE INCREASED [None]
  - MENSTRUATION DELAYED [None]
